FAERS Safety Report 7364079-X (Version None)
Quarter: 2011Q1

REPORT INFORMATION
  Report Type: 
  Country: None (occurrence: None)
  Receive Date: 20110321
  Receipt Date: 20110308
  Transmission Date: 20110831
  Serious: Yes (Other)
  Sender: FDA-Public Use
  Company Number: PHHY2011US19270

PATIENT
  Sex: Female

DRUGS (30)
  1. MULTI-VITAMIN [Concomitant]
     Dosage: UNK, DAILY
  2. TRIAMCINOLONE ACETONIDE W/NYSTATIN [Concomitant]
     Dosage: UNK, DAILY
  3. GILENYA [Suspect]
     Indication: MULTIPLE SCLEROSIS
     Dosage: 0.5 MG, QD
     Route: 048
     Dates: start: 20110303
  4. HYDROCODONE BITARTRATE [Concomitant]
     Dosage: 10/500, THREE DAY PRN (50000 U EVERY MONTH)
  5. TOTAL B WITH C [Concomitant]
     Dosage: UNK
  6. OXYTROL [Concomitant]
     Dosage: 3.9 MG, UNK
  7. VITAMIN D [Concomitant]
     Dosage: UNK
  8. ACUVIL [Concomitant]
     Dosage: 1 DRP, UNK
  9. FLUCONAZOLE [Concomitant]
     Dosage: 150 MG, EVERY TWO MONTH
  10. HYDROXYZINE [Concomitant]
     Dosage: 25 MG, TID
  11. DETROL [Concomitant]
     Dosage: 4 MG, QD
  12. PROTONIX [Concomitant]
     Dosage: 40 MG, QD
  13. VENTOLIN [Concomitant]
     Dosage: UNK
  14. VITAMIN B-12 [Concomitant]
     Dosage: UNK, MONTHLY
  15. NAPROXEN [Concomitant]
     Dosage: 500 MG, TID
  16. TIZANIDINE [Concomitant]
     Dosage: 4 MG, UNK (240 MONTHLY)
  17. CALTRATE 600 + VITAMIN D [Concomitant]
     Dosage: 1 DF, DAILY
  18. BETAMETHASONE [Concomitant]
     Dosage: UNK, DAILY
  19. GABAPENTIN [Concomitant]
     Dosage: 300 MG, SIX TIMES DAILY
  20. PRILOCAINE HYDROCHLORIDE [Concomitant]
     Dosage: UNK
  21. PROMETHAZINE [Concomitant]
     Dosage: 25 MG, PRN
  22. CYMBALTA [Concomitant]
     Dosage: 60 MG, QD
  23. LAMISIL [Concomitant]
     Dosage: 250 MG, QD
  24. HEPHINE [Concomitant]
     Dosage: UNK, MONTHLY
  25. XIBROM [Concomitant]
     Dosage: 2 DRP, IN EACH EYES
  26. ARTICVAL TEARS [Concomitant]
     Dosage: 2-3 DROP EACH EYE DAILY
  27. LOVAZA [Concomitant]
     Dosage: 1000 MG, TID
  28. LIDOCAINE [Concomitant]
     Dosage: UNK
  29. FUROSEMIDE [Concomitant]
     Dosage: 40 MG, QD (AS NEEDED)
     Route: 048
  30. BUTORPHANOL [Concomitant]
     Dosage: 10 ML, TWO TIME A MONTH

REACTIONS (17)
  - CYANOSIS [None]
  - EYELID PTOSIS [None]
  - ANAPHYLACTIC REACTION [None]
  - EPISTAXIS [None]
  - POLYURIA [None]
  - PHARYNGEAL OEDEMA [None]
  - SWELLING [None]
  - PAIN [None]
  - DYSPHAGIA [None]
  - PYREXIA [None]
  - SINUSITIS [None]
  - HEART RATE DECREASED [None]
  - GAIT DISTURBANCE [None]
  - LIP SWELLING [None]
  - HYPERTENSION [None]
  - NECK PAIN [None]
  - DYSPNOEA [None]
